FAERS Safety Report 18841980 (Version 3)
Quarter: 2021Q1

REPORT INFORMATION
  Report Type: Spontaneous
  Country: JP (occurrence: JP)
  Receive Date: 20210204
  Receipt Date: 20210225
  Transmission Date: 20210419
  Serious: Yes (Other)
  Sender: FDA-Public Use
  Company Number: JP-ASTELLAS-2020JP012770

PATIENT
  Age: 8 Decade
  Sex: Female

DRUGS (6)
  1. XOSPATA [Suspect]
     Active Substance: GILTERITINIB
     Dosage: 40 MG, 80 MG, EVERY OTHER DAY
     Route: 048
  2. XOSPATA [Suspect]
     Active Substance: GILTERITINIB
     Route: 048
     Dates: start: 202101
  3. XOSPATA [Suspect]
     Active Substance: GILTERITINIB
     Route: 048
  4. XOSPATA [Suspect]
     Active Substance: GILTERITINIB
     Dosage: 80 MG, 120 MG, EVERY OTHER DAY
     Route: 048
  5. XOSPATA [Suspect]
     Active Substance: GILTERITINIB
     Indication: PRODUCT USED FOR UNKNOWN INDICATION
     Route: 048
  6. XOSPATA [Suspect]
     Active Substance: GILTERITINIB
     Route: 048

REACTIONS (5)
  - Therapeutic response decreased [Unknown]
  - Electrocardiogram QT prolonged [Recovered/Resolved]
  - Hepatic function abnormal [Recovered/Resolved]
  - Cytopenia [Not Recovered/Not Resolved]
  - Product use issue [Unknown]
